FAERS Safety Report 4616007-5 (Version None)
Quarter: 2005Q1

REPORT INFORMATION
  Report Type: 
  Country: None (occurrence: None)
  Receive Date: 20050323
  Receipt Date: 20050311
  Transmission Date: 20050727
  Serious: Yes (Other)
  Sender: FDA-Public Use
  Company Number: RO-JNJFOC-20050203068

PATIENT
  Sex: Female
  Weight: 56 kg

DRUGS (3)
  1. REMICADE [Suspect]
     Indication: RHEUMATOID ARTHRITIS
     Route: 042
  2. METHOTREXATE [Concomitant]
     Indication: RHEUMATOID ARTHRITIS
     Route: 049
  3. CELEBREX [Concomitant]
     Route: 049

REACTIONS (3)
  - CHEST PAIN [None]
  - INFUSION RELATED REACTION [None]
  - PALPITATIONS [None]
